FAERS Safety Report 10267043 (Version 2)
Quarter: 2014Q2

REPORT INFORMATION
  Report Type: Report from Study
  Country: CA (occurrence: CA)
  Receive Date: 20140630
  Receipt Date: 20140630
  Transmission Date: 20141212
  Serious: Yes (Hospitalization)
  Sender: FDA-Public Use
  Company Number: CA-BRISTOL-MYERS SQUIBB COMPANY-20838025

PATIENT
  Age: 78 Year
  Sex: Male

DRUGS (14)
  1. ORENCIA [Suspect]
     Indication: RHEUMATOID ARTHRITIS
     Dosage: LAST DOSE OF ORENCIA WAS 19-APR-2014.
     Route: 042
     Dates: start: 20120629
  2. TEMAZEPAM [Concomitant]
  3. OXYCOCET [Concomitant]
  4. TAMSULOSIN [Concomitant]
  5. CRESTOR [Concomitant]
  6. CYMBALTA [Concomitant]
  7. SYNTHROID [Concomitant]
  8. AVODART [Concomitant]
  9. COVERSYL [Concomitant]
  10. METFORMIN [Concomitant]
  11. PREDNISONE [Concomitant]
  12. CARVEDILOL [Concomitant]
  13. FUROSEMIDE [Concomitant]
  14. FLORINEF [Concomitant]

REACTIONS (2)
  - Melanocytic naevus [Recovered/Resolved]
  - Wound infection [Recovered/Resolved]
